FAERS Safety Report 11079673 (Version 1)
Quarter: 2015Q2

REPORT INFORMATION
  Report Type: Report from Study
  Country: US (occurrence: US)
  Receive Date: 20150430
  Receipt Date: 20150430
  Transmission Date: 20150821
  Serious: Yes (Hospitalization)
  Sender: FDA-Public Use
  Company Number: US-TEVA-558347USA

PATIENT
  Age: 70 Year
  Sex: Female
  Weight: 53.12 kg

DRUGS (14)
  1. VITAMIN D3 [Concomitant]
     Active Substance: CHOLECALCIFEROL
     Indication: ROUTINE HEALTH MAINTENANCE
     Dosage: 2000 MILLIGRAM DAILY;
     Route: 048
     Dates: start: 201005
  2. OMEGA 3 [Concomitant]
     Active Substance: OMEGA-3 FATTY ACIDS
     Indication: ROUTINE HEALTH MAINTENANCE
     Dosage: 600 MILLIGRAM DAILY;
     Route: 048
     Dates: start: 2009
  3. METFORMIN [Suspect]
     Active Substance: METFORMIN HYDROCHLORIDE
     Indication: DIABETES MELLITUS
     Dosage: 1500 MILLIGRAM DAILY;
     Route: 048
     Dates: start: 20110509, end: 20110706
  4. CELECOXIB; IBUPROFEN; NAPROXEN; PLACEBO [Suspect]
     Active Substance: CELECOXIB\IBUPROFEN\NAPROXEN\PLACEBO
     Indication: OSTEOARTHRITIS
     Dosage: BLINDED, INFORMATION WITHHELD
     Route: 048
     Dates: start: 20101130, end: 20110708
  5. NEXIUM [Concomitant]
     Active Substance: ESOMEPRAZOLE MAGNESIUM
     Indication: GASTROOESOPHAGEAL REFLUX PROPHYLAXIS
     Dosage: 80 MILLIGRAM DAILY;
     Route: 048
     Dates: start: 20101130, end: 20120405
  6. BENICAR [Concomitant]
     Active Substance: OLMESARTAN MEDOXOMIL
     Indication: HYPERTENSION
     Dosage: 20 MILLIGRAM DAILY;
     Route: 048
     Dates: start: 2008
  7. CINNAMON. [Concomitant]
     Active Substance: CINNAMON
     Indication: ROUTINE HEALTH MAINTENANCE
     Dosage: 500 MILLIGRAM DAILY;
     Route: 048
     Dates: start: 2008
  8. FOSAMAX [Suspect]
     Active Substance: ALENDRONATE SODIUM
     Indication: OSTEOPENIA
     Route: 048
     Dates: start: 201010, end: 20110729
  9. CELECOXIB; IBUPROFEN; NAPROXEN; PLACEBO [Suspect]
     Active Substance: CELECOXIB\IBUPROFEN\NAPROXEN\PLACEBO
     Indication: RHEUMATOID ARTHRITIS
  10. CALCIUM [Concomitant]
     Active Substance: CALCIUM
     Indication: ROUTINE HEALTH MAINTENANCE
     Dosage: 1200 MILLIGRAM DAILY;
     Route: 048
     Dates: start: 2000
  11. SIMVASTATIN. [Concomitant]
     Active Substance: SIMVASTATIN
     Indication: DYSLIPIDAEMIA
     Dosage: 40 MILLIGRAM DAILY;
     Route: 048
     Dates: start: 201008
  12. NORVASC [Concomitant]
     Active Substance: AMLODIPINE BESYLATE
     Indication: HYPERTENSION
     Dosage: 5 MILLIGRAM DAILY;
     Route: 048
     Dates: start: 2007
  13. FIBERMED [Concomitant]
     Indication: ROUTINE HEALTH MAINTENANCE
     Dosage: 4 DOSAGE FORMS DAILY;
     Route: 048
     Dates: start: 200605
  14. MULTIVITAMINS [Concomitant]
     Active Substance: VITAMINS
     Indication: ROUTINE HEALTH MAINTENANCE
     Dosage: 1 DOSAGE FORMS DAILY;
     Route: 048
     Dates: start: 1995

REACTIONS (1)
  - Gastrooesophageal reflux disease [Recovered/Resolved]

NARRATIVE: CASE EVENT DATE: 20110615
